FAERS Safety Report 26076302 (Version 1)
Quarter: 2025Q4

REPORT INFORMATION
  Report Type: Spontaneous
  Country: US (occurrence: US)
  Receive Date: 20251121
  Receipt Date: 20251121
  Transmission Date: 20260117
  Serious: No
  Sender: SPECGX
  Company Number: US-SPECGX-T202501076

PATIENT
  Age: 76 Year
  Sex: Female
  Weight: 65 kg

DRUGS (2)
  1. ATROPINE\DIPHENOXYLATE [Suspect]
     Active Substance: ATROPINE\DIPHENOXYLATE
     Indication: Anal incontinence
     Dosage: 2.5 MILLIGRAM, QD
     Route: 065
     Dates: start: 20250513
  2. ATROPINE\DIPHENOXYLATE [Suspect]
     Active Substance: ATROPINE\DIPHENOXYLATE
     Dosage: 5 MILLIGRAM
     Route: 065
     Dates: start: 20250520

REACTIONS (1)
  - Drug effective for unapproved indication [Unknown]
